FAERS Safety Report 6330876-2 (Version None)
Quarter: 2009Q3

REPORT INFORMATION
  Report Type: 
  Country: None (occurrence: None)
  Receive Date: 20090827
  Receipt Date: 20090819
  Transmission Date: 20100115
  Serious: Yes (Hospitalization, Other)
  Sender: FDA-Public Use
  Company Number: GB-JNJFOC-20090606612

PATIENT
  Age: 78 Year
  Sex: Female
  Weight: 73 kg

DRUGS (11)
  1. REMICADE [Suspect]
     Route: 042
  2. REMICADE [Suspect]
     Route: 042
  3. REMICADE [Suspect]
     Route: 042
  4. REMICADE [Suspect]
     Indication: RHEUMATOID ARTHRITIS
     Route: 042
  5. BENDROFLUAZIDE [Suspect]
     Indication: DRUG USE FOR UNKNOWN INDICATION
  6. METHOTREXATE SODIUM [Concomitant]
  7. FOLIC ACID [Concomitant]
  8. PREDNISOLONE [Concomitant]
  9. EVISTA [Concomitant]
  10. LEVOTHYROXINE SODIUM [Concomitant]
  11. CALCI-CHEW [Concomitant]

REACTIONS (5)
  - ABDOMINAL PAIN [None]
  - HYPONATRAEMIA [None]
  - TRANSIENT ISCHAEMIC ATTACK [None]
  - URINARY TRACT INFECTION [None]
  - WEIGHT DECREASED [None]
